FAERS Safety Report 25200624 (Version 3)
Quarter: 2025Q4

REPORT INFORMATION
  Report Type: Spontaneous
  Country: JP (occurrence: JP)
  Receive Date: 20250415
  Receipt Date: 20251120
  Transmission Date: 20260117
  Serious: Yes (Hospitalization, Other)
  Sender: MERCK SHARP & DOHME LLC
  Company Number: JP-MSD-M2023-33791

PATIENT
  Age: 52 Year
  Sex: Female

DRUGS (11)
  1. KEYTRUDA [Suspect]
     Active Substance: PEMBROLIZUMAB
     Indication: Uterine cancer
     Dosage: DOSE DESCRIPTION : 200 MILLIGRAM, Q3W?DAILY DOSE : 9.4 MILLIGRAM?REGIMEN DOSE : 200  MILLIGRAM
     Route: 041
     Dates: start: 20230808, end: 2024
  2. KEYTRUDA [Suspect]
     Active Substance: PEMBROLIZUMAB
     Indication: Uterine cancer
     Dosage: DOSE DESCRIPTION : 200 MILLIGRAM, Q3W?DAILY DOSE : 9.4 MILLIGRAM?REGIMEN DOSE : 200  MILLIGRAM
     Route: 041
     Dates: start: 20250327, end: 20250327
  3. KEYTRUDA [Suspect]
     Active Substance: PEMBROLIZUMAB
     Indication: Uterine cancer
     Dosage: DOSE DESCRIPTION : 200 MILLIGRAM, Q3W?DAILY DOSE : 9.4 MILLIGRAM?REGIMEN DOSE : 200  MILLIGRAM
     Route: 041
     Dates: start: 20250306, end: 20250306
  4. KEYTRUDA [Suspect]
     Active Substance: PEMBROLIZUMAB
     Indication: Uterine cancer
     Dosage: DOSE DESCRIPTION : 200 MILLIGRAM, Q3W?COMPLETED 29TH CYCLE
     Route: 041
     Dates: start: 20250327, end: 20251111
  5. LENVIMA [Suspect]
     Active Substance: LENVATINIB
     Indication: Uterine cancer
     Dosage: DOSE DESCRIPTION : 20 MILLIGRAM, QD?DAILY DOSE : 20 MILLIGRAM?REGIMEN DOSE : 240  MILLIGRAM
     Route: 048
     Dates: start: 20230808, end: 20230819
  6. LENVIMA [Suspect]
     Active Substance: LENVATINIB
     Indication: Uterine cancer
     Dosage: DOSE DESCRIPTION : 14 MILLIGRAM, QD?DAILY DOSE : 14 MILLIGRAM?REGIMEN DOSE : 28  MILLIGRAM
     Route: 048
     Dates: start: 20230926, end: 20230927
  7. LENVIMA [Suspect]
     Active Substance: LENVATINIB
     Indication: Uterine cancer
     Dosage: DOSE DESCRIPTION : 14 MILLIGRAM, QD?DAILY DOSE : 14 MILLIGRAM?REGIMEN DOSE : 98  MILLIGRAM
     Route: 048
     Dates: start: 20231004, end: 20231010
  8. LENVIMA [Suspect]
     Active Substance: LENVATINIB
     Indication: Uterine cancer
     Dosage: DOSE DESCRIPTION : 10 MILLIGRAM
     Route: 048
     Dates: start: 20231029, end: 20231101
  9. LENVIMA [Suspect]
     Active Substance: LENVATINIB
     Indication: Uterine cancer
     Dosage: DOSE DESCRIPTION : 2 DAYS ADMINISTRATION, 2 DAYS OFF
     Route: 048
     Dates: start: 202311, end: 202312
  10. LENVIMA [Suspect]
     Active Substance: LENVATINIB
     Indication: Uterine cancer
     Dosage: TIME INTERVAL: CYCLICAL: DOSE DESCRIPTION : 10 MILLIGRAM, CYCLICAL
     Route: 048
     Dates: start: 2023, end: 202312
  11. LENVIMA [Suspect]
     Active Substance: LENVATINIB
     Indication: Uterine cancer
     Dosage: DOSE DESCRIPTION : 10 MILLIGRAM, ORAL FOR 2 DAYS, WITH 1 DAY OFF
     Route: 048
     Dates: start: 20231227, end: 202412

REACTIONS (13)
  - Cholecystitis [Recovered/Resolved]
  - Pulmonary artery thrombosis [Recovered/Resolved]
  - Thrombosis in device [Recovered/Resolved]
  - Pyrexia [Recovered/Resolved]
  - Sepsis [Recovered/Resolved]
  - Brain natriuretic peptide increased [Unknown]
  - Bacterial infection [Recovered/Resolved]
  - Fibrin D dimer increased [Recovered/Resolved]
  - COVID-19 [Recovered/Resolved]
  - Arthritis [Recovered/Resolved]
  - Platelet count decreased [Unknown]
  - Malaise [Recovering/Resolving]
  - Blood thyroid stimulating hormone increased [Unknown]

NARRATIVE: CASE EVENT DATE: 20230820
